FAERS Safety Report 5833140-0 (Version None)
Quarter: 2008Q3

REPORT INFORMATION
  Report Type: 
  Country: None (occurrence: None)
  Receive Date: 20080731
  Receipt Date: 20080716
  Transmission Date: 20090109
  Serious: Yes (Death, Other)
  Sender: FDA-Public Use
  Company Number: 2008AL008349

PATIENT
  Age: 99 Year
  Sex: Female
  Weight: 54.8852 kg

DRUGS (8)
  1. DIGOXIN [Suspect]
     Indication: ARRHYTHMIA
     Dosage: 0.125MG DAILY PO
     Route: 048
  2. DIGOXIN [Suspect]
     Indication: CARDIAC FAILURE
     Dosage: 0.125MG DAILY PO
     Route: 048
  3. FUROSEMIDE [Concomitant]
  4. FAMOTODINE [Concomitant]
  5. POTASSIUM CHLORIDE [Concomitant]
  6. WARFARIN SODIUM [Concomitant]
  7. ENALAPRIL MALEATE [Concomitant]
  8. DILTIAZEM HCL [Concomitant]

REACTIONS (11)
  - ARRHYTHMIA [None]
  - BRADYCARDIA [None]
  - BURNING SENSATION [None]
  - CARDIAC DISORDER [None]
  - DIZZINESS [None]
  - FALL [None]
  - FRACTURE [None]
  - HYPOTENSION [None]
  - NAUSEA [None]
  - PHARMACEUTICAL PRODUCT COMPLAINT [None]
  - VOMITING [None]
